FAERS Safety Report 21213775 (Version 2)
Quarter: 2022Q3

REPORT INFORMATION
  Report Type: Spontaneous
  Country: US (occurrence: US)
  Receive Date: 20220816
  Receipt Date: 20220921
  Transmission Date: 20221027
  Serious: No
  Sender: FDA-Public Use
  Company Number: US-JNJFOC-20220817692

PATIENT
  Age: 41 Year
  Sex: Female

DRUGS (11)
  1. CONCERTA [Suspect]
     Active Substance: METHYLPHENIDATE HYDROCHLORIDE
     Indication: Product used for unknown indication
     Route: 048
     Dates: start: 20220721
  2. CONCERTA [Suspect]
     Active Substance: METHYLPHENIDATE HYDROCHLORIDE
     Route: 048
     Dates: start: 20220721
  3. WELLBUTRIN [Concomitant]
     Active Substance: BUPROPION HYDROCHLORIDE
     Dosage: XR 300 MG
  4. ABILIFY [Concomitant]
     Active Substance: ARIPIPRAZOLE
  5. FLUOXETINE [Concomitant]
     Active Substance: FLUOXETINE HYDROCHLORIDE
  6. BENICAR [Concomitant]
     Active Substance: OLMESARTAN MEDOXOMIL
  7. FUROSEMIDE [Concomitant]
     Active Substance: FUROSEMIDE
  8. OXCARBAZEPINE [Concomitant]
     Active Substance: OXCARBAZEPINE
  9. XANAX [Concomitant]
     Active Substance: ALPRAZOLAM
  10. IMITREX [Concomitant]
     Active Substance: SUMATRIPTAN SUCCINATE
  11. ONDANSETRON [Concomitant]
     Active Substance: ONDANSETRON
     Dosage: ODT

REACTIONS (7)
  - Product dispensing issue [Unknown]
  - Off label use [Unknown]
  - Blood pressure abnormal [Unknown]
  - Malaise [Unknown]
  - Hypertension [Recovered/Resolved]
  - Feeling abnormal [Recovered/Resolved]
  - Headache [Recovered/Resolved]

NARRATIVE: CASE EVENT DATE: 20220721
